FAERS Safety Report 5964835-6 (Version None)
Quarter: 2008Q4

REPORT INFORMATION
  Report Type: 
  Country: None (occurrence: None)
  Receive Date: 20081124
  Receipt Date: 20081124
  Transmission Date: 20090506
  Serious: Yes (Hospitalization)
  Sender: FDA-Public Use
  Company Number: None

PATIENT

DRUGS (1)
  1. OXYCODONE HCL [Suspect]
     Indication: PAIN
     Dates: start: 20080926, end: 20081022

REACTIONS (4)
  - CYANOSIS [None]
  - MIOSIS [None]
  - SYNCOPE [None]
  - UNRESPONSIVE TO STIMULI [None]
